FAERS Safety Report 10161107 (Version 2)
Quarter: 2014Q2

REPORT INFORMATION
  Report Type: Spontaneous
  Country: US (occurrence: US)
  Receive Date: 20140508
  Receipt Date: 20140611
  Transmission Date: 20141212
  Serious: Yes (Death)
  Sender: FDA-Public Use
  Company Number: US-PFIZER INC-2014122607

PATIENT
  Age: 71 Year
  Sex: Female
  Weight: 104.31 kg

DRUGS (1)
  1. REVATIO [Suspect]
     Indication: PULMONARY HYPERTENSION
     Dosage: UNK
     Dates: start: 2011

REACTIONS (4)
  - Chronic obstructive pulmonary disease [Fatal]
  - Tobacco abuse [Fatal]
  - Visual impairment [Unknown]
  - Dyspnoea [Unknown]
